FAERS Safety Report 6500442-4 (Version None)
Quarter: 2009Q4

REPORT INFORMATION
  Report Type: 
  Country: None (occurrence: None)
  Receive Date: 20091216
  Receipt Date: 20091215
  Transmission Date: 20100525
  Serious: Yes (Hospitalization)
  Sender: FDA-Public Use
  Company Number: KR-ROCHE-658582

PATIENT
  Sex: Female
  Weight: 61 kg

DRUGS (8)
  1. TRASTUZUMAB [Suspect]
     Indication: BREAST CANCER
     Dosage: DOSE LEVEL: 8MG/KG, DOSAGE FORM: VIALS
     Route: 042
     Dates: start: 20090916
  2. TRASTUZUMAB [Suspect]
     Dosage: DOSE LEVEL: 6 MG/KG, LAST DOSE PRIOR TO SAE 07 OCTOBER 2009, FORM : VIALS.
     Route: 042
  3. TRASTUZUMAB [Suspect]
     Dosage: DOSE LEVEL: 8MG/KG, DOSE FORM: VIALS, LAST DOSE PRIOR TO SAE: 07 OCT 2009, 2 CYCLE
     Route: 042
  4. DOCETAXEL [Suspect]
     Indication: BREAST CANCER
     Dosage: DOSE LEVEL: 75MG/M2, DOSAGE FORM: VIALS.
     Route: 042
     Dates: start: 20090916
  5. DOCETAXEL [Suspect]
     Dosage: DOSE LEVEL: 75MG/M2, DOSAGE FORM: VIALS, LAST DOSE PRIOR TO SAE: 07 OCT 2009, 2 CYCLE
     Route: 042
  6. CARBOPLATIN [Suspect]
     Indication: BREAST CANCER
     Dosage: DOSE LEVEL: 6 AUC, DOSAGE FORM: VIALS
     Route: 042
     Dates: start: 20090916
  7. CARBOPLATIN [Suspect]
     Dosage: DOSE LEVEL : 06 AUC, LAST DOSE PRIOT TO SAE : 07 OCTOBER 2009.
     Route: 042
  8. CARBOPLATIN [Suspect]
     Dosage: DOSE LEVEL: 6 AUC, LAST DOSE PRIOT TO SAE: 07 OCTOBER 2009, 2 CYCLES
     Route: 042

REACTIONS (2)
  - FEBRILE NEUTROPENIA [None]
  - INSOMNIA [None]
